FAERS Safety Report 17933077 (Version 1)
Quarter: 2020Q2

REPORT INFORMATION
  Report Type: Spontaneous
  Country: FR (occurrence: FR)
  Receive Date: 20200623
  Receipt Date: 20200623
  Transmission Date: 20200714
  Serious: Yes (Other)
  Sender: FDA-Public Use
  Company Number: FR-PFIZER INC-2020240499

PATIENT
  Age: 16 Year
  Sex: Male

DRUGS (1)
  1. LYRICA [Suspect]
     Active Substance: PREGABALIN
     Dosage: 2100 MG
     Route: 048

REACTIONS (5)
  - Somnolence [Recovered/Resolved]
  - Drug abuser [Unknown]
  - Psychomotor skills impaired [Unknown]
  - Drug abuse [Unknown]
  - Overdose [Unknown]
